FAERS Safety Report 8579222-4 (Version None)
Quarter: 2012Q3

REPORT INFORMATION
  Report Type: 
  Country: None (occurrence: None)
  Receive Date: 20120730
  Receipt Date: 20120730
  Transmission Date: 20120928
  Serious: No
  Sender: FDA-Public Use
  Company Number: None

PATIENT
  Age: 69 Year
  Sex: Female
  Weight: 59.8748 kg

DRUGS (1)
  1. METRONIDAZOLE [Suspect]
     Indication: HELICOBACTER GASTRITIS
     Dosage: 500 MG 1 BID PO
     Route: 048
     Dates: start: 20120727, end: 20120727

REACTIONS (3)
  - PRODUCT SOLUBILITY ABNORMAL [None]
  - DYSGEUSIA [None]
  - CHOKING SENSATION [None]
